FAERS Safety Report 12653931 (Version 1)
Quarter: 2016Q3

REPORT INFORMATION
  Report Type: Report from Study
  Country: US (occurrence: US)
  Receive Date: 20160816
  Receipt Date: 20160816
  Transmission Date: 20161109
  Serious: Yes (Death, Life-Threatening, Hospitalization)
  Sender: FDA-Public Use
  Company Number: US-ROCHE-1813466

PATIENT
  Age: 51 Year
  Sex: Male

DRUGS (9)
  1. CYCLOPHOSPHAMIDE. [Suspect]
     Active Substance: CYCLOPHOSPHAMIDE
     Indication: B-CELL LYMPHOMA
     Dosage: MOST RECENT PROTOCOL TRETRMENT DATE PRIOR TO SAE : 23/SEP/2010
     Route: 042
     Dates: start: 20100819
  2. FLUDARABINE [Suspect]
     Active Substance: FLUDARABINE PHOSPHATE
     Indication: B-CELL LYMPHOMA
     Dosage: MOST RECENT PROTOCOL TRETRMENT DATE PRIOR TO SAE : 23/SEP/2010
     Route: 042
     Dates: start: 20100819
  3. OCTREOTIDE ACETATE. [Concomitant]
     Active Substance: OCTREOTIDE ACETATE
     Route: 065
     Dates: start: 20101116, end: 20101128
  4. RITUXIMAB [Suspect]
     Active Substance: RITUXIMAB
     Indication: B-CELL LYMPHOMA
     Dosage: MOST RECENT PROTOCOL TREATMENT DATE PRIOR TO SAE : 23/SEP/2010
     Route: 042
     Dates: start: 20100819
  5. METHYLPREDNISONE (UNK INGREDIENTS) [Concomitant]
     Route: 065
     Dates: start: 20101112
  6. PREDNISONE. [Concomitant]
     Active Substance: PREDNISONE
     Route: 065
     Dates: start: 20101109, end: 20101112
  7. MYCOPHENOLATE MOFETIL. [Concomitant]
     Active Substance: MYCOPHENOLATE MOFETIL
     Route: 065
     Dates: start: 20101115, end: 20101126
  8. METHOTREXATE. [Suspect]
     Active Substance: METHOTREXATE
     Indication: B-CELL LYMPHOMA
     Dosage: MOST RECENT PROTOCOL TRETRMENT DATE PRIOR TO SAE : 23/SEP/2010
     Route: 065
     Dates: start: 20100819
  9. ETANERCEPT [Concomitant]
     Active Substance: ETANERCEPT
     Route: 065
     Dates: end: 20101120

REACTIONS (4)
  - Restrictive cardiomyopathy [Fatal]
  - Pyrexia [Recovered/Resolved]
  - Febrile neutropenia [Recovered/Resolved]
  - Diarrhoea [Fatal]

NARRATIVE: CASE EVENT DATE: 20100928
